FAERS Safety Report 8854448 (Version 1)
Quarter: 2012Q4

REPORT INFORMATION
  Report Type: Spontaneous
  Country: US (occurrence: None)
  Receive Date: 20121022
  Receipt Date: 20121022
  Transmission Date: 20130627
  Serious: Yes (Other)
  Sender: FDA-Public Use
  Company Number: None

PATIENT
  Age: 65 Year
  Sex: Male
  Weight: 108.86 kg

DRUGS (1)
  1. CEPHALEXIN [Suspect]
     Indication: LACERATION OF FINGER
     Dosage: 500mg  4/day  po
     Route: 048
     Dates: start: 20121012, end: 20121020

REACTIONS (5)
  - Anxiety [None]
  - Insomnia [None]
  - Nightmare [None]
  - Palpitations [None]
  - Blood pressure increased [None]
